FAERS Safety Report 15591539 (Version 2)
Quarter: 2018Q4

REPORT INFORMATION
  Report Type: Spontaneous
  Country: JP (occurrence: JP)
  Receive Date: 20181106
  Receipt Date: 20181128
  Transmission Date: 20190205
  Serious: Yes (Life-Threatening)
  Sender: FDA-Public Use
  Company Number: JP-GUERBET-JP-20180254

PATIENT
  Age: 9 Decade
  Sex: Male

DRUGS (4)
  1. ETHANOLAMINE OLEATE. [Concomitant]
     Active Substance: ETHANOLAMINE OLEATE
     Indication: THERAPEUTIC EMBOLISATION
     Route: 042
  2. IOPAMIDOL [Concomitant]
     Active Substance: IOPAMIDOL
     Indication: THERAPEUTIC EMBOLISATION
     Route: 042
  3. LIPIODOL [Suspect]
     Active Substance: ETHIODIZED OIL
     Indication: THERAPEUTIC EMBOLISATION
     Route: 042
  4. HISTOACRYL [Concomitant]
     Active Substance: ENBUCRILATE
     Indication: THERAPEUTIC EMBOLISATION
     Route: 042

REACTIONS (4)
  - Product use in unapproved indication [Recovered/Resolved]
  - Serratia infection [Recovered/Resolved]
  - Disseminated intravascular coagulation [Recovered/Resolved]
  - Septic shock [Recovered/Resolved]
